FAERS Safety Report 9278775 (Version 5)
Quarter: 2014Q2

REPORT INFORMATION
  Report Type: Spontaneous
  Country: JP (occurrence: JP)
  Receive Date: 20130508
  Receipt Date: 20140418
  Transmission Date: 20141212
  Serious: Yes (Other)
  Sender: FDA-Public Use
  Company Number: JP-PFIZER INC-2013141542

PATIENT
  Age: 49 Year
  Sex: Female
  Weight: 86.7 kg

DRUGS (16)
  1. NORVASC OD [Suspect]
     Indication: HYPERTENSION
     Dosage: 2.5 MG, 1X/DAY
     Route: 048
     Dates: start: 20130429, end: 20130502
  2. AMPICILLIN SODIUM W/SULBACTAM SODIUM [Suspect]
     Indication: INFECTION
     Dosage: 1.5 G, 1X/DAY
     Route: 041
     Dates: start: 20130430, end: 20130525
  3. DIOVAN [Concomitant]
     Indication: HYPERTENSION
     Dosage: 40 MG, 1X/DAY
     Route: 048
     Dates: end: 20130428
  4. LIVALO [Concomitant]
     Indication: DYSLIPIDAEMIA
     Dosage: 1 MG, 1X/DAY
     Route: 048
     Dates: end: 20130501
  5. ADONA [Concomitant]
     Indication: RETINAL HAEMORRHAGE
     Dosage: 30 MG, 3X/DAY
     Route: 048
  6. DEPROMEL [Concomitant]
     Indication: DEPRESSION
     Dosage: 25 MG, 1X/DAY
     Route: 048
  7. SEDIEL [Concomitant]
     Indication: DEPRESSION
     Dosage: 1 DF, 3X/DAY
     Route: 048
  8. MEDICON [Concomitant]
     Indication: COUGH
     Dosage: 1 DF, AS NEEDED
     Route: 048
     Dates: start: 20130427
  9. CEFTRIAXONE [Concomitant]
     Indication: INFECTION
     Dosage: 1 G, 2X/DAY
     Route: 041
     Dates: start: 20130427, end: 20130429
  10. LASIX [Concomitant]
     Indication: RENAL FAILURE CHRONIC
     Dosage: 20 MG, 1X/DAY
     Route: 041
     Dates: start: 20130428
  11. LASIX [Concomitant]
     Indication: GENERALISED OEDEMA
  12. ISOTONIC SODIUM CHLORIDE [Concomitant]
     Dosage: 50 ML, 1X/DAY
     Route: 041
     Dates: start: 20130427
  13. GLUCOSE [Concomitant]
     Dosage: 50 ML, 1X/DAY
     Route: 041
     Dates: start: 20130428
  14. SOLITA-T1 INJECTION [Concomitant]
     Dosage: 500 ML, 1X/DAY
     Route: 041
     Dates: start: 20130428
  15. VITAMEDIN INTRAVENOUS [Concomitant]
     Dosage: 1 DF, 1X/DAY
     Route: 041
     Dates: start: 20130428
  16. LANTUS [Concomitant]
     Indication: DIABETES MELLITUS
     Dosage: UNK
     Route: 058

REACTIONS (1)
  - Blood creatine phosphokinase increased [Recovered/Resolved]
